FAERS Safety Report 17579544 (Version 2)
Quarter: 2020Q2

REPORT INFORMATION
  Report Type: Spontaneous
  Country: DE (occurrence: DE)
  Receive Date: 20200325
  Receipt Date: 20200401
  Transmission Date: 20200713
  Serious: Yes (Hospitalization)
  Sender: FDA-Public Use
  Company Number: DE-MYLANLABS-2020M1031625

PATIENT
  Age: 90 Year
  Sex: Female

DRUGS (10)
  1. OXYCODONE [Suspect]
     Active Substance: OXYCODONE
     Indication: PRODUCT USED FOR UNKNOWN INDICATION
     Dosage: 10 MILLIGRAM (1-0-0-0, RETARD)
  2. PREGABALIN. [Suspect]
     Active Substance: PREGABALIN
     Indication: PRODUCT USED FOR UNKNOWN INDICATION
     Dosage: 225 MILLIGRAM (PAUSIERT)
  3. CARBIMAZOL [Concomitant]
     Active Substance: CARBIMAZOLE
     Dosage: 5 MILLIGRAM (1-0-0-0)
  4. AMLODIPIN                          /00972401/ [Concomitant]
     Active Substance: AMLODIPINE BESYLATE
     Dosage: 5 MILLIGRAM (1-0-0-0)
  5. METHYLPREDNISOLON                  /00049601/ [Suspect]
     Active Substance: METHYLPREDNISOLONE
     Indication: PRODUCT USED FOR UNKNOWN INDICATION
     Dosage: 4 MILLIGRAM (0.5-0-0-0)
  6. CALCIUM W/COLECALCIFEROL [Concomitant]
     Active Substance: CALCIUM\CHOLECALCIFEROL
     Dosage: 500|400 MG/IE, 1-0-1-0, KAUTABLETTEN
  7. PANTOPRAZOL                        /01263201/ [Concomitant]
     Active Substance: PANTOPRAZOLE
     Dosage: 40 MILLIGRAM (1-0-0-0)
  8. ACETYLSALICYLIC ACID [Concomitant]
     Active Substance: ASPIRIN
     Dosage: 100 MILLIGRAM (1-0-0-0)
  9. METAMIZOL                          /06276701/ [Suspect]
     Active Substance: METAMIZOLE
     Indication: PRODUCT USED FOR UNKNOWN INDICATION
     Dosage: 500 MILLIGRAM (PAUSIERT)
  10. CANDESARTAN. [Concomitant]
     Active Substance: CANDESARTAN
     Dosage: 16 MILLIGRAM (0-1-0-0)

REACTIONS (12)
  - Aphasia [Unknown]
  - Apathy [Unknown]
  - Musculoskeletal pain [Unknown]
  - Vomiting [Unknown]
  - Tremor [Unknown]
  - Headache [Unknown]
  - Fluid intake reduced [Unknown]
  - General physical health deterioration [Unknown]
  - Disorientation [Unknown]
  - Restlessness [Unknown]
  - Memory impairment [Unknown]
  - Disturbance in attention [Unknown]
